FAERS Safety Report 18968017 (Version 1)
Quarter: 2021Q1

REPORT INFORMATION
  Report Type: Spontaneous
  Country: SA (occurrence: SA)
  Receive Date: 20210304
  Receipt Date: 20210304
  Transmission Date: 20210420
  Serious: Yes (Disabling)
  Sender: FDA-Public Use
  Company Number: SA-SA-2021SA071085

PATIENT
  Age: 15 Year
  Sex: Male
  Weight: 52 kg

DRUGS (2)
  1. DUPIXENT [Suspect]
     Active Substance: DUPILUMAB
     Indication: NASAL POLYPS
  2. DUPIXENT [Suspect]
     Active Substance: DUPILUMAB
     Indication: ASTHMA
     Dosage: UNK
     Dates: start: 20210224

REACTIONS (7)
  - Condition aggravated [Unknown]
  - Pyrexia [Unknown]
  - Upper-airway cough syndrome [Unknown]
  - Vomiting [Unknown]
  - Asthma [Unknown]
  - Cough [Unknown]
  - Nasal polyps [Unknown]

NARRATIVE: CASE EVENT DATE: 202102
